FAERS Safety Report 15164898 (Version 1)
Quarter: 2018Q3

REPORT INFORMATION
  Report Type: Spontaneous
  Country: CH (occurrence: CH)
  Receive Date: 20180719
  Receipt Date: 20180719
  Transmission Date: 20181010
  Serious: Yes (Other)
  Sender: FDA-Public Use
  Company Number: CH-ROCHE-2155703

PATIENT
  Age: 77 Year
  Sex: Male

DRUGS (9)
  1. FAMVIR [Suspect]
     Active Substance: FAMCICLOVIR
     Indication: PRODUCT USED FOR UNKNOWN INDICATION
     Route: 065
  2. GAZYVARO [Concomitant]
     Active Substance: OBINUTUZUMAB
     Route: 065
  3. MABTHERA [Suspect]
     Active Substance: RITUXIMAB
     Indication: CHRONIC LYMPHOCYTIC LEUKAEMIA
     Route: 065
     Dates: start: 20121112
  4. TANNO?HERMAL [Suspect]
     Active Substance: DEVICE\TALC\TANNIC ACID\ZINC OXIDE
     Indication: PRODUCT USED FOR UNKNOWN INDICATION
     Route: 065
  5. ENDOXAN [Concomitant]
     Active Substance: CYCLOPHOSPHAMIDE
     Indication: CHRONIC LYMPHOCYTIC LEUKAEMIA
     Route: 065
     Dates: start: 20121112
  6. IMBRUVICA [Suspect]
     Active Substance: IBRUTINIB
     Indication: PRODUCT USED FOR UNKNOWN INDICATION
     Route: 065
  7. FLUDARABIN [Concomitant]
     Active Substance: FLUDARABINE PHOSPHATE
     Indication: CHRONIC LYMPHOCYTIC LEUKAEMIA
     Route: 065
     Dates: start: 20120227, end: 20120611
  8. FLUDARABIN [Concomitant]
     Active Substance: FLUDARABINE PHOSPHATE
     Route: 065
     Dates: start: 20121112
  9. LEUKERAN [Concomitant]
     Active Substance: CHLORAMBUCIL

REACTIONS (10)
  - Hypersensitivity [Unknown]
  - Herpes zoster [Unknown]
  - Migraine [None]
  - Malignant neoplasm progression [None]
  - Respiratory tract infection [Unknown]
  - Disease progression [Unknown]
  - Infection susceptibility increased [None]
  - Headache [Unknown]
  - Drug ineffective [Unknown]
  - Chronic lymphocytic leukaemia [None]

NARRATIVE: CASE EVENT DATE: 20150311
